FAERS Safety Report 8881027 (Version 2)
Quarter: 2012Q4

REPORT INFORMATION
  Report Type: 
  Country: US (occurrence: US)
  Receive Date: 20121101
  Receipt Date: 20121109
  Transmission Date: 20130627
  Serious: Yes (Other)
  Sender: FDA-Public Use
  Company Number: US-WATSON-2012-18143

PATIENT
  Age: 34 None
  Sex: Male
  Weight: 68 kg

DRUGS (1)
  1. PENTAZOCINE + NALOXONE [Suspect]
     Indication: PAIN
     Dosage: 1 tab every 3-4 hrs
     Route: 048
     Dates: start: 20121015

REACTIONS (5)
  - Suicidal ideation [Not Recovered/Not Resolved]
  - Hallucination [Not Recovered/Not Resolved]
  - Headache [Not Recovered/Not Resolved]
  - Chest pain [Recovered/Resolved]
  - Swelling [None]
